FAERS Safety Report 21773954 (Version 3)
Quarter: 2023Q1

REPORT INFORMATION
  Report Type: Spontaneous
  Country: RU (occurrence: RU)
  Receive Date: 20221223
  Receipt Date: 20230320
  Transmission Date: 20230418
  Serious: Yes (Other)
  Sender: FDA-Public Use
  Company Number: RU-009507513-2212RUS008496

PATIENT
  Age: 60 Year
  Sex: Female
  Weight: 58 kg

DRUGS (5)
  1. PEMBROLIZUMAB [Suspect]
     Active Substance: PEMBROLIZUMAB
     Indication: Metastatic uterine cancer
     Dosage: 200 MILLIGRAM, Q3W
  2. LENVATINIB MESYLATE [Suspect]
     Active Substance: LENVATINIB MESYLATE
     Indication: Metastatic uterine cancer
     Dosage: 10 MILLIGRAM, QD (30 DAYS BREAK)
     Route: 048
     Dates: start: 202007, end: 202303
  3. LENVATINIB MESYLATE [Suspect]
     Active Substance: LENVATINIB MESYLATE
     Dosage: 20 MILLIGRAM, QD
     Route: 048
     Dates: start: 202004, end: 202007
  4. LENVATINIB MESYLATE [Suspect]
     Active Substance: LENVATINIB MESYLATE
     Dosage: 14 MILLIGRAM, QD
     Dates: start: 202303
  5. PACLITAXEL [Suspect]
     Active Substance: PACLITAXEL
     Indication: Metastatic uterine cancer
     Dosage: UNK

REACTIONS (10)
  - Dehydration [Unknown]
  - Vomiting [Unknown]
  - Fatigue [Unknown]
  - Diarrhoea [Unknown]
  - Musculoskeletal disorder [Unknown]
  - Gastrointestinal pain [Not Recovered/Not Resolved]
  - Pain in extremity [Not Recovered/Not Resolved]
  - Asthenia [Not Recovered/Not Resolved]
  - Arthralgia [Unknown]
  - Weight decreased [Unknown]

NARRATIVE: CASE EVENT DATE: 20200701
